FAERS Safety Report 9870305 (Version 1)
Quarter: 2014Q1

REPORT INFORMATION
  Report Type: Spontaneous
  Country: GB (occurrence: GB)
  Receive Date: 20140205
  Receipt Date: 20140205
  Transmission Date: 20141002
  Serious: Yes (Disabling)
  Sender: FDA-Public Use
  Company Number: GB-UCBSA-110953

PATIENT
  Age: 37 Year
  Sex: Female
  Weight: 58 kg

DRUGS (4)
  1. CO-CODAMOL [Suspect]
     Route: 048
  2. FLUOXETINE [Concomitant]
     Dates: start: 20130916, end: 20131016
  3. MELOXICAM [Concomitant]
     Dates: start: 20130916, end: 20131016
  4. OMEPRAZOLE [Concomitant]
     Dates: start: 20130916, end: 20131014

REACTIONS (1)
  - Headache [Recovered/Resolved]
